FAERS Safety Report 23181239 (Version 1)
Quarter: 2023Q4

REPORT INFORMATION
  Report Type: Spontaneous
  Country: US (occurrence: US)
  Receive Date: 20231114
  Receipt Date: 20231114
  Transmission Date: 20240109
  Serious: No
  Sender: FDA-Public Use
  Company Number: US-PHARMING-PHAUS2023000838

PATIENT

DRUGS (2)
  1. RUCONEST [Suspect]
     Active Substance: HUMAN C1-ESTERASE INHIBITOR
     Indication: Product used for unknown indication
     Dosage: 4200 IU, AS NEEDED
     Route: 042
     Dates: start: 20180726
  2. CINRYZE [Concomitant]
     Active Substance: HUMAN C1-ESTERASE INHIBITOR
     Indication: Product used for unknown indication

REACTIONS (1)
  - Maternal exposure during pregnancy [Unknown]
